FAERS Safety Report 21982735 (Version 1)
Quarter: 2023Q1

REPORT INFORMATION
  Report Type: Spontaneous
  Country: US (occurrence: US)
  Receive Date: 20230213
  Receipt Date: 20230213
  Transmission Date: 20230418
  Serious: No
  Sender: FDA-Public Use
  Company Number: US-SA-SAC20230209001839

PATIENT
  Age: 11 Year
  Sex: Female
  Weight: 58.01 kg

DRUGS (4)
  1. DUPIXENT [Suspect]
     Active Substance: DUPILUMAB
     Indication: Dermatitis atopic
     Dosage: 200 MG, QOW
     Route: 058
  2. DUPIXENT [Suspect]
     Active Substance: DUPILUMAB
     Dosage: 300 MG, QOW
     Route: 058
  3. VITAMINS NOS [Concomitant]
     Active Substance: VITAMINS
     Dosage: UNK
  4. PROBIOTICS NOS [Concomitant]
     Active Substance: PROBIOTICS NOS
     Dosage: UNK

REACTIONS (2)
  - Dermatitis atopic [Unknown]
  - Incorrect dose administered [Unknown]
